FAERS Safety Report 7742221-6 (Version None)
Quarter: 2011Q3

REPORT INFORMATION
  Report Type: 
  Country: None (occurrence: None)
  Receive Date: 20110912
  Receipt Date: 20110901
  Transmission Date: 20111222
  Serious: Yes (Death)
  Sender: FDA-Public Use
  Company Number: US-UCBSA-040590

PATIENT
  Age: 68 Year
  Sex: Male
  Weight: 81 kg

DRUGS (5)
  1. LAMOTRIGINE [Concomitant]
     Indication: CONVULSION
     Dosage: UNKNOWN DOSE AND FREQUENCY
     Route: 048
     Dates: start: 19980118
  2. KEPPRA [Suspect]
     Indication: CONVULSION
     Route: 048
     Dates: start: 19980118
  3. LAMICTAL [Concomitant]
     Indication: CONVULSION
     Route: 048
     Dates: start: 19980118
  4. LEVETIRACETAM [Concomitant]
     Indication: CONVULSION
     Route: 048
     Dates: start: 20070615
  5. PHENYTOIN [Concomitant]
     Indication: CONVULSION
     Dosage: UNKNOWN DOSE AND FREQUENCY
     Dates: end: 19980617

REACTIONS (2)
  - NEOPLASM MALIGNANT [None]
  - CARDIAC ARREST [None]
